FAERS Safety Report 4723428-9 (Version None)
Quarter: 2005Q3

REPORT INFORMATION
  Report Type: 
  Country: None (occurrence: None)
  Receive Date: 20050721
  Receipt Date: 20050721
  Transmission Date: 20060218
  Serious: Yes (Hospitalization)
  Sender: FDA-Public Use
  Company Number: None

PATIENT
  Age: 55 Year
  Sex: Female

DRUGS (1)
  1. LITHIUM    300 MG [Suspect]
     Indication: BIPOLAR DISORDER
     Dosage: 300 MG   TWICE DAILY   ORAL
     Route: 048

REACTIONS (2)
  - ANTIPSYCHOTIC DRUG LEVEL INCREASED [None]
  - MENTAL STATUS CHANGES [None]
